FAERS Safety Report 12306825 (Version 1)
Quarter: 2016Q2

REPORT INFORMATION
  Report Type: Spontaneous
  Country: US (occurrence: US)
  Receive Date: 20160426
  Receipt Date: 20160426
  Transmission Date: 20160815
  Serious: No
  Sender: FDA-Public Use
  Company Number: US-TAKEDA-2016TUS006774

PATIENT

DRUGS (1)
  1. TRINTELLIX [Suspect]
     Active Substance: VORTIOXETINE HYDROBROMIDE
     Indication: DEPRESSION
     Dosage: 5 MG, QD
     Route: 065

REACTIONS (5)
  - Drug effect decreased [Unknown]
  - Depersonalisation/derealisation disorder [Unknown]
  - Alcohol interaction [Unknown]
  - Decreased interest [Unknown]
  - Feeling abnormal [Unknown]
